FAERS Safety Report 5546816-X (Version None)
Quarter: 2007Q4

REPORT INFORMATION
  Report Type: 
  Country: None (occurrence: None)
  Receive Date: 20071126
  Receipt Date: 20070509
  Transmission Date: 20080405
  Serious: Yes (Hospitalization)
  Sender: FDA-Public Use
  Company Number: 2007BH004225

PATIENT
  Age: 57 Year
  Sex: Female

DRUGS (6)
  1. DIANEAL [Suspect]
     Indication: RENAL FAILURE CHRONIC
     Dosage: 8500 MG; EVERY DAY; IP
     Route: 033
     Dates: start: 20070101
  2. VITAMIN CAP [Concomitant]
  3. NORVASC [Concomitant]
  4. PAXIL [Concomitant]
  5. RENAGEL [Concomitant]
  6. NEPHRO-VITE RX [Concomitant]

REACTIONS (1)
  - PERITONITIS BACTERIAL [None]
